FAERS Safety Report 17017041 (Version 1)
Quarter: 2019Q4

REPORT INFORMATION
  Report Type: Spontaneous
  Country: US (occurrence: US)
  Receive Date: 20191004
  Receipt Date: 20191004
  Transmission Date: 20200122
  Serious: Yes (Death)
  Sender: FDA-Public Use
  Company Number: None

PATIENT
  Age: 75 Year
  Sex: Male

DRUGS (10)
  1. TEMOZOLOMIDE 250 MG [Suspect]
     Active Substance: TEMOZOLOMIDE
     Indication: PANCREATIC CARCINOMA
     Route: 048
     Dates: start: 20190402, end: 20190820
  2. CREON [Concomitant]
     Active Substance: PANCRELIPASE AMYLASE\PANCRELIPASE LIPASE\PANCRELIPASE PROTEASE
  3. ONDANSETRON [Concomitant]
     Active Substance: ONDANSETRON
  4. TEMOZOLOMIDE 20 MG [Suspect]
     Active Substance: TEMOZOLOMIDE
     Indication: PANCREATIC CARCINOMA
     Route: 048
     Dates: start: 20190402, end: 20190820
  5. CAPECITABINE. [Concomitant]
     Active Substance: CAPECITABINE
  6. LORAZEPAM. [Concomitant]
     Active Substance: LORAZEPAM
  7. NYSTATIN. [Concomitant]
     Active Substance: NYSTATIN
  8. CLOPIDOGREL [Concomitant]
     Active Substance: CLOPIDOGREL BISULFATE
  9. HYDROCO/APAP [Concomitant]
     Active Substance: ACETAMINOPHEN\HYDROCODONE
  10. LEVOFLOXACIN. [Concomitant]
     Active Substance: LEVOFLOXACIN

REACTIONS (1)
  - Death [None]

NARRATIVE: CASE EVENT DATE: 20190820
